FAERS Safety Report 10537515 (Version 2)
Quarter: 2014Q4

REPORT INFORMATION
  Report Type: Spontaneous
  Country: US (occurrence: None)
  Receive Date: 20141021
  Receipt Date: 20141027
  Transmission Date: 20150529
  Serious: No
  Sender: FDA-Public Use
  Company Number: 14-02448

PATIENT
  Age: 37 Year
  Sex: Female
  Weight: 65.77 kg

DRUGS (2)
  1. ASTHMANEFRIN [Suspect]
     Active Substance: RACEPINEPHRINE HYDROCHLORIDE
     Indication: ASTHMA
     Dosage: 1 VIAL Q24H 054
     Dates: start: 20140929, end: 20141005
  2. RACEPINEPHRINE [Suspect]
     Active Substance: RACEPINEPHRINE

REACTIONS (1)
  - Sputum discoloured [None]

NARRATIVE: CASE EVENT DATE: 20141005
